FAERS Safety Report 9263124 (Version 1)
Quarter: 2013Q2

REPORT INFORMATION
  Report Type: Spontaneous
  Country: GB (occurrence: None)
  Receive Date: 20130426
  Receipt Date: 20130426
  Transmission Date: 20140414
  Serious: Yes (Other)
  Sender: FDA-Public Use
  Company Number: 1689330

PATIENT
  Age: 71 Year
  Sex: Female

DRUGS (3)
  1. GENTAMICIN SULFATE [Suspect]
  2. FLUCLOXACILLIN [Suspect]
     Route: 040
  3. EPHEDRINE [Concomitant]

REACTIONS (2)
  - Renal failure acute [None]
  - Dialysis [None]
